FAERS Safety Report 18431521 (Version 1)
Quarter: 2020Q4

REPORT INFORMATION
  Report Type: Spontaneous
  Country: US (occurrence: US)
  Receive Date: 20201027
  Receipt Date: 20201027
  Transmission Date: 20210114
  Serious: Yes (Hospitalization)
  Sender: FDA-Public Use
  Company Number: None

PATIENT
  Age: 42 Year
  Sex: Female

DRUGS (1)
  1. BOSENTAN 125 MG TABLETS 60/BO: (TEVA): [Suspect]
     Active Substance: BOSENTAN
     Indication: PULMONARY ARTERIAL HYPERTENSION
     Route: 048
     Dates: start: 20190624, end: 20201022

REACTIONS (5)
  - Asthenia [None]
  - Hepatic enzyme increased [None]
  - Therapy interrupted [None]
  - Acute kidney injury [None]
  - Rectal haemorrhage [None]

NARRATIVE: CASE EVENT DATE: 20201022
